FAERS Safety Report 6908628-1 (Version None)
Quarter: 2010Q3

REPORT INFORMATION
  Report Type: 
  Country: None (occurrence: None)
  Receive Date: 20100805
  Receipt Date: 20100728
  Transmission Date: 20110219
  Serious: Yes (Other)
  Sender: FDA-Public Use
  Company Number: US-PFIZER INC-2010081823

PATIENT
  Sex: Female
  Weight: 70.295 kg

DRUGS (2)
  1. LIPITOR [Suspect]
     Indication: TYPE IIA HYPERLIPIDAEMIA
     Dosage: 20 MG, 1X/DAY
     Route: 048
     Dates: start: 20080901, end: 20090501
  2. PREVACID [Concomitant]
     Dosage: 30 MG, AS NEEDED
     Route: 048

REACTIONS (1)
  - INTRA-UTERINE DEATH [None]
